FAERS Safety Report 11592829 (Version 2)
Quarter: 2015Q4

REPORT INFORMATION
  Report Type: Report from Study
  Country: US (occurrence: US)
  Receive Date: 20151005
  Receipt Date: 20151027
  Transmission Date: 20160304
  Serious: Yes (Hospitalization)
  Sender: FDA-Public Use
  Company Number: US-BIOGENIDEC-2015BI133046

PATIENT
  Age: 58 Year
  Sex: Female

DRUGS (17)
  1. TECFIDERA [Suspect]
     Active Substance: DIMETHYL FUMARATE
     Indication: MULTIPLE SCLEROSIS
     Route: 048
     Dates: start: 20150813
  2. FISH OIL [Concomitant]
     Active Substance: FISH OIL
  3. OXYCONTIN [Concomitant]
     Active Substance: OXYCODONE HYDROCHLORIDE
  4. SOLU-MEDROL [Concomitant]
     Active Substance: METHYLPREDNISOLONE SODIUM SUCCINATE
     Route: 042
  5. TOPROL XL [Concomitant]
     Active Substance: METOPROLOL SUCCINATE
  6. LORAZEPAM. [Concomitant]
     Active Substance: LORAZEPAM
  7. CALCIUM 500 +D [Concomitant]
  8. OXYCODONE HYDROCHLORIDE. [Concomitant]
     Active Substance: OXYCODONE HYDROCHLORIDE
  9. IBUPROFEN. [Concomitant]
     Active Substance: IBUPROFEN
  10. BACLOFEN. [Concomitant]
     Active Substance: BACLOFEN
  11. LISINOPRIL. [Concomitant]
     Active Substance: LISINOPRIL
  12. KEPPRA [Concomitant]
     Active Substance: LEVETIRACETAM
  13. PREDNISONE. [Concomitant]
     Active Substance: PREDNISONE
  14. GABAPENTIN. [Concomitant]
     Active Substance: GABAPENTIN
  15. IRON [Concomitant]
     Active Substance: IRON
  16. VITAMIN D [Concomitant]
     Active Substance: CHOLECALCIFEROL
  17. TECFIDERA [Suspect]
     Active Substance: DIMETHYL FUMARATE
     Indication: MULTIPLE SCLEROSIS
     Route: 048

REACTIONS (2)
  - Wound infection [Recovered/Resolved]
  - Decubitus ulcer [Recovered/Resolved]

NARRATIVE: CASE EVENT DATE: 2015
